FAERS Safety Report 25112233 (Version 2)
Quarter: 2025Q2

REPORT INFORMATION
  Report Type: Spontaneous
  Country: CA (occurrence: CA)
  Receive Date: 20250324
  Receipt Date: 20250521
  Transmission Date: 20250717
  Serious: Yes (Hospitalization)
  Sender: PFIZER
  Company Number: CA-PFIZER INC-202500062713

PATIENT
  Age: 60 Year
  Sex: Male

DRUGS (9)
  1. ABRILADA [Suspect]
     Active Substance: ADALIMUMAB-AFZB
     Indication: Crohn^s disease
     Route: 058
     Dates: start: 20230424
  2. ABRILADA [Suspect]
     Active Substance: ADALIMUMAB-AFZB
     Route: 058
  3. APIXABAN [Concomitant]
     Active Substance: APIXABAN
  4. AVENTYL [Concomitant]
     Active Substance: NORTRIPTYLINE HYDROCHLORIDE
  5. AVIANE [Concomitant]
     Active Substance: ETHINYL ESTRADIOL\LEVONORGESTREL
  6. BACLOFEN [Concomitant]
     Active Substance: BACLOFEN
  7. GABAPENTIN [Concomitant]
     Active Substance: GABAPENTIN
  8. SIMVASTATIN [Concomitant]
     Active Substance: SIMVASTATIN
  9. VENLAFAXINE [Concomitant]
     Active Substance: VENLAFAXINE HYDROCHLORIDE

REACTIONS (1)
  - Road traffic accident [Unknown]
